FAERS Safety Report 4335338-X (Version None)
Quarter: 2004Q2

REPORT INFORMATION
  Report Type: 
  Country: None (occurrence: None)
  Receive Date: 20040409
  Receipt Date: 20040212
  Transmission Date: 20050107
  Serious: Yes (Death)
  Sender: FDA-Public Use
  Company Number: PHEH2004US01931

PATIENT
  Age: 48 Year
  Sex: Female

DRUGS (4)
  1. CLOZARIL [Suspect]
     Indication: PSYCHOTIC DISORDER
     Dosage: 400 MG, QHS
     Route: 048
     Dates: start: 19950802
  2. DESIPRAMINE HCL [Concomitant]
     Indication: ENURESIS
     Dosage: 150 MG, QHS
     Route: 048
     Dates: start: 19970821
  3. ARICEPT [Concomitant]
     Indication: DEMENTIA
     Dosage: 10 MG, QD
     Route: 048
     Dates: start: 20020815
  4. DITROPAN                                /USA/ [Concomitant]
     Indication: BLADDER DISORDER
     Dosage: 5 MG, TID
     Route: 048
     Dates: start: 19960125

REACTIONS (3)
  - CIRCULATORY COLLAPSE [None]
  - OVERDOSE [None]
  - SUDDEN DEATH [None]
